FAERS Safety Report 8909224 (Version 1)
Quarter: 2012Q4

REPORT INFORMATION
  Report Type: Spontaneous
  Country: US (occurrence: None)
  Receive Date: 20121113
  Receipt Date: 20121113
  Transmission Date: 20130627
  Serious: Yes (Hospitalization)
  Sender: FDA-Public Use
  Company Number: None

PATIENT
  Age: 81 Year
  Sex: Male
  Weight: 98.6 kg

DRUGS (2)
  1. IBUPROFEN [Suspect]
     Dates: start: 20111116, end: 20120712
  2. DABIGATRAN [Suspect]
     Dates: start: 20110613

REACTIONS (1)
  - Gastric haemorrhage [None]
